FAERS Safety Report 20806445 (Version 1)
Quarter: 2022Q2

REPORT INFORMATION
  Report Type: Report from Study
  Country: IN (occurrence: IN)
  Receive Date: 20220510
  Receipt Date: 20220510
  Transmission Date: 20220721
  Serious: Yes (Other)
  Sender: FDA-Public Use
  Company Number: IN-SUN PHARMACEUTICAL INDUSTRIES LTD-2022R1-335830

PATIENT
  Age: 25 Year
  Sex: Male

DRUGS (8)
  1. METHOTREXATE [Suspect]
     Active Substance: METHOTREXATE
     Indication: Arthritis
     Dosage: 20-25 MILLIGRAM
     Route: 065
  2. HYDROXYCHLOROQUINE [Concomitant]
     Active Substance: HYDROXYCHLOROQUINE
     Indication: Arthritis
     Dosage: 400 MILLIGRAM
     Route: 065
  3. SULFASALAZINE [Concomitant]
     Active Substance: SULFASALAZINE
     Indication: Arthritis
     Dosage: 3000 MILLIGRAM
     Route: 065
  4. INFLIXIMAB [Concomitant]
     Active Substance: INFLIXIMAB
     Indication: Arthritis
     Dosage: 6 DOSE
     Route: 065
  5. ETANERCEPT [Concomitant]
     Active Substance: ETANERCEPT
     Indication: Arthritis
     Dosage: 8 DOSE
     Route: 065
  6. ADALIMUMAB [Concomitant]
     Active Substance: ADALIMUMAB
     Indication: Arthritis
     Dosage: 8 DOSE
     Route: 065
  7. SECUKINUMAB [Concomitant]
     Active Substance: SECUKINUMAB
     Indication: Arthritis
     Dosage: 5 DOSE
     Route: 065
  8. MORPHINE [Concomitant]
     Active Substance: MORPHINE
     Indication: Product used for unknown indication
     Dosage: UNK
     Route: 065

REACTIONS (2)
  - Hypertransaminasaemia [Unknown]
  - Lower respiratory tract infection [Unknown]
